FAERS Safety Report 4441108-4 (Version None)
Quarter: 2004Q3

REPORT INFORMATION
  Report Type: 
  Country: None (occurrence: None)
  Receive Date: 20040902
  Receipt Date: 20040902
  Transmission Date: 20050211
  Serious: Yes (Life-Threatening, Disabling)
  Sender: FDA-Public Use
  Company Number: None

PATIENT
  Age: 49 Year
  Sex: Male
  Weight: 99.7913 kg

DRUGS (5)
  1. REYATAZ [Suspect]
     Indication: HIV INFECTION
     Dosage: 300 MG DAILY ORAL
     Route: 048
     Dates: start: 20031001, end: 20040812
  2. EFFEXOR [Suspect]
  3. VIREAD [Concomitant]
  4. NORVIR [Concomitant]
  5. EMTRIVA [Concomitant]

REACTIONS (4)
  - BACK PAIN [None]
  - BUTTOCK PAIN [None]
  - CHEST PAIN [None]
  - PAIN IN EXTREMITY [None]
